FAERS Safety Report 26166077 (Version 1)
Quarter: 2025Q4

REPORT INFORMATION
  Report Type: Spontaneous
  Country: CN (occurrence: CN)
  Receive Date: 20251216
  Receipt Date: 20251216
  Transmission Date: 20260117
  Serious: Yes (Death, Other)
  Sender: RANBAXY
  Company Number: CN-SUN PHARMACEUTICAL INDUSTRIES INC-2025R1-533059

PATIENT
  Sex: Female

DRUGS (1)
  1. IVERMECTIN [Suspect]
     Active Substance: IVERMECTIN
     Indication: Rash
     Dosage: 200ML (1%, 2 G
     Route: 062

REACTIONS (3)
  - Brain oedema [Fatal]
  - Brain death [Fatal]
  - Toxicity to various agents [Unknown]
